FAERS Safety Report 21473330 (Version 2)
Quarter: 2022Q4

REPORT INFORMATION
  Report Type: Report from Study
  Country: US (occurrence: US)
  Receive Date: 20221018
  Receipt Date: 20221121
  Transmission Date: 20230113
  Serious: Yes (Other)
  Sender: FDA-Public Use
  Company Number: US-TAKEDA-2021TUS079144

PATIENT
  Age: 62 Year
  Sex: Male
  Weight: 102 kg

DRUGS (32)
  1. TEDUGLUTIDE [Suspect]
     Active Substance: TEDUGLUTIDE
     Indication: Short-bowel syndrome
     Dosage: 5.13 MILLIGRAM, QD
     Route: 058
     Dates: start: 202110
  2. TEDUGLUTIDE [Suspect]
     Active Substance: TEDUGLUTIDE
     Indication: Short-bowel syndrome
     Dosage: 5.13 MILLIGRAM, QD
     Route: 058
     Dates: start: 202110
  3. TEDUGLUTIDE [Suspect]
     Active Substance: TEDUGLUTIDE
     Indication: Short-bowel syndrome
     Dosage: 5.13 MILLIGRAM, QD
     Route: 058
     Dates: start: 202110
  4. TEDUGLUTIDE [Suspect]
     Active Substance: TEDUGLUTIDE
     Indication: Short-bowel syndrome
     Dosage: 5.13 MILLIGRAM, QD
     Route: 058
     Dates: start: 202110
  5. TEDUGLUTIDE [Suspect]
     Active Substance: TEDUGLUTIDE
     Dosage: 5.13 MILLIGRAM, QD
     Route: 058
     Dates: start: 20211110
  6. TEDUGLUTIDE [Suspect]
     Active Substance: TEDUGLUTIDE
     Dosage: 5.13 MILLIGRAM, QD
     Route: 058
     Dates: start: 20211110
  7. TEDUGLUTIDE [Suspect]
     Active Substance: TEDUGLUTIDE
     Dosage: 5.13 MILLIGRAM, QD
     Route: 058
     Dates: start: 20211110
  8. TEDUGLUTIDE [Suspect]
     Active Substance: TEDUGLUTIDE
     Dosage: 5.13 MILLIGRAM, QD
     Route: 058
     Dates: start: 20211110
  9. TEDUGLUTIDE [Suspect]
     Active Substance: TEDUGLUTIDE
     Dosage: 5.13 MILLIGRAM, QD
     Route: 058
     Dates: start: 20211111
  10. TEDUGLUTIDE [Suspect]
     Active Substance: TEDUGLUTIDE
     Dosage: 5.13 MILLIGRAM, QD
     Route: 058
     Dates: start: 20211111
  11. TEDUGLUTIDE [Suspect]
     Active Substance: TEDUGLUTIDE
     Dosage: 5.13 MILLIGRAM, QD
     Route: 058
     Dates: start: 20211111
  12. TEDUGLUTIDE [Suspect]
     Active Substance: TEDUGLUTIDE
     Dosage: 5.13 MILLIGRAM, QD
     Route: 058
     Dates: start: 20211111
  13. TEDUGLUTIDE [Suspect]
     Active Substance: TEDUGLUTIDE
     Dosage: 5.13 MILLIGRAM, QD
     Route: 058
     Dates: start: 20211112
  14. TEDUGLUTIDE [Suspect]
     Active Substance: TEDUGLUTIDE
     Dosage: 5.13 MILLIGRAM, QD
     Route: 058
     Dates: start: 20211112
  15. TEDUGLUTIDE [Suspect]
     Active Substance: TEDUGLUTIDE
     Dosage: 5.13 MILLIGRAM, QD
     Route: 058
     Dates: start: 20211112
  16. TEDUGLUTIDE [Suspect]
     Active Substance: TEDUGLUTIDE
     Dosage: 5.13 MILLIGRAM, QD
     Route: 058
     Dates: start: 20211112
  17. TEDUGLUTIDE [Suspect]
     Active Substance: TEDUGLUTIDE
     Dosage: 5.13 MILLIGRAM, QD
     Route: 058
     Dates: start: 202111
  18. TEDUGLUTIDE [Suspect]
     Active Substance: TEDUGLUTIDE
     Dosage: 5.13 MILLIGRAM, QD
     Route: 058
     Dates: start: 202111
  19. TEDUGLUTIDE [Suspect]
     Active Substance: TEDUGLUTIDE
     Dosage: 5.13 MILLIGRAM, QD
     Route: 058
     Dates: start: 202111
  20. TEDUGLUTIDE [Suspect]
     Active Substance: TEDUGLUTIDE
     Dosage: 5.13 MILLIGRAM, QD
     Route: 058
     Dates: start: 202111
  21. TEDUGLUTIDE [Suspect]
     Active Substance: TEDUGLUTIDE
     Dosage: 5.13 MILLIGRAM, QD
     Route: 058
     Dates: end: 20220715
  22. TEDUGLUTIDE [Suspect]
     Active Substance: TEDUGLUTIDE
     Dosage: 5.13 MILLIGRAM, QD
     Route: 058
     Dates: end: 20220715
  23. TEDUGLUTIDE [Suspect]
     Active Substance: TEDUGLUTIDE
     Dosage: 5.13 MILLIGRAM, QD
     Route: 058
     Dates: end: 20220715
  24. TEDUGLUTIDE [Suspect]
     Active Substance: TEDUGLUTIDE
     Dosage: 5.13 MILLIGRAM, QD
     Route: 058
     Dates: end: 20220715
  25. TEDUGLUTIDE [Suspect]
     Active Substance: TEDUGLUTIDE
     Dosage: 2.49 MILLIGRAM, QD
     Route: 058
     Dates: start: 20220825
  26. TEDUGLUTIDE [Suspect]
     Active Substance: TEDUGLUTIDE
     Dosage: 2.49 MILLIGRAM, QD
     Route: 058
     Dates: start: 20220825
  27. TEDUGLUTIDE [Suspect]
     Active Substance: TEDUGLUTIDE
     Dosage: 2.49 MILLIGRAM, QD
     Route: 058
     Dates: start: 20220825
  28. TEDUGLUTIDE [Suspect]
     Active Substance: TEDUGLUTIDE
     Dosage: 2.49 MILLIGRAM, QD
     Route: 058
     Dates: start: 20220825
  29. TEDUGLUTIDE [Suspect]
     Active Substance: TEDUGLUTIDE
     Dosage: 2.49 MILLIGRAM, QD
     Route: 058
     Dates: start: 20220824
  30. TEDUGLUTIDE [Suspect]
     Active Substance: TEDUGLUTIDE
     Dosage: 2.49 MILLIGRAM, QD
     Route: 058
     Dates: start: 20220824
  31. TEDUGLUTIDE [Suspect]
     Active Substance: TEDUGLUTIDE
     Dosage: 2.49 MILLIGRAM, QD
     Route: 058
     Dates: start: 20220824
  32. TEDUGLUTIDE [Suspect]
     Active Substance: TEDUGLUTIDE
     Dosage: 2.49 MILLIGRAM, QD
     Route: 058
     Dates: start: 20220824

REACTIONS (17)
  - Impaired gastric emptying [Not Recovered/Not Resolved]
  - Gastrointestinal obstruction [Unknown]
  - Abdominal distension [Recovering/Resolving]
  - Urinary tract infection [Recovered/Resolved]
  - Stoma site oedema [Unknown]
  - Muscle spasms [Unknown]
  - Swelling face [Unknown]
  - Peripheral swelling [Unknown]
  - Gastrointestinal sounds abnormal [Unknown]
  - Blood creatinine increased [Unknown]
  - Illness [Unknown]
  - Injection site discolouration [Unknown]
  - Dumping syndrome [Unknown]
  - Dry throat [Unknown]
  - Decreased appetite [Recovering/Resolving]
  - Gastrointestinal stoma complication [Unknown]
  - Onychomycosis [Not Recovered/Not Resolved]

NARRATIVE: CASE EVENT DATE: 20220307
